FAERS Safety Report 9459632 (Version 1)
Quarter: 2013Q3

REPORT INFORMATION
  Report Type: Spontaneous
  Country: US (occurrence: US)
  Receive Date: 20130815
  Receipt Date: 20130815
  Transmission Date: 20140515
  Serious: No
  Sender: FDA-Public Use
  Company Number: US-COVIDIEN/TYCO HEALTHCARE/MALLINCKRODT-T201303721

PATIENT
  Age: 49 Year
  Sex: Male
  Weight: 126.98 kg

DRUGS (3)
  1. FENTANYL TRANSDERMAL SYSTEM [Suspect]
     Indication: PAIN
     Dosage: 100 UG/HR, 1 PATCH Q 72 HOURS
     Route: 062
     Dates: start: 20130625
  2. OXYCONTIN [Concomitant]
     Indication: PAIN
     Dosage: UNK, QD
     Route: 048
     Dates: start: 200901
  3. NEURONTIN [Concomitant]
     Indication: PRODUCT USED FOR UNKNOWN INDICATION
     Dosage: UNK

REACTIONS (5)
  - Application site erythema [Recovered/Resolved]
  - Application site swelling [Recovered/Resolved]
  - Feeling abnormal [Not Recovered/Not Resolved]
  - Drug administered at inappropriate site [Recovered/Resolved]
  - Drug effect decreased [Not Recovered/Not Resolved]
